FAERS Safety Report 11531226 (Version 2)
Quarter: 2015Q4

REPORT INFORMATION
  Report Type: Spontaneous
  Country: US (occurrence: US)
  Receive Date: 20150921
  Receipt Date: 20151110
  Transmission Date: 20160304
  Serious: Yes (Hospitalization, Other)
  Sender: FDA-Public Use
  Company Number: US-ASTRAZENECA-2015SE91132

PATIENT
  Age: 19954 Day
  Sex: Female
  Weight: 59.4 kg

DRUGS (2)
  1. CRESTOR [Suspect]
     Active Substance: ROSUVASTATIN CALCIUM
     Indication: BLOOD CHOLESTEROL INCREASED
     Dosage: UNKNOWN DOSE, DAILY
     Route: 048
     Dates: start: 20141010, end: 20150826
  2. CRESTOR [Suspect]
     Active Substance: ROSUVASTATIN CALCIUM
     Indication: HYPERLIPIDAEMIA
     Dosage: UNKNOWN DOSE, DAILY
     Route: 048
     Dates: start: 20141010, end: 20150826

REACTIONS (5)
  - Pancreatitis [Recovered/Resolved]
  - Hypertension [Unknown]
  - Hepatic cyst [Unknown]
  - Pancreatic duct dilatation [Unknown]
  - Migraine [Unknown]

NARRATIVE: CASE EVENT DATE: 20150821
